FAERS Safety Report 15479859 (Version 1)
Quarter: 2018Q4

REPORT INFORMATION
  Report Type: Spontaneous
  Country: ZA (occurrence: ZA)
  Receive Date: 20181009
  Receipt Date: 20181009
  Transmission Date: 20190205
  Serious: Yes (Other)
  Sender: FDA-Public Use
  Company Number: ZA-TEVA-2018-ZA-961590

PATIENT
  Sex: Female

DRUGS (10)
  1. PLENISH K 600MG [Suspect]
     Active Substance: POTASSIUM CHLORIDE
     Route: 048
  2. VUSOR 40 MG [Suspect]
     Active Substance: ROSUVASTATIN CALCIUM
     Route: 048
  3. MENGEN 1000MG [Suspect]
     Active Substance: METFORMIN HYDROCHLORIDE
     Route: 048
  4. LYRICA [Suspect]
     Active Substance: PREGABALIN
     Route: 048
  5. BILOCOR CO 10/6.25MG [Suspect]
     Active Substance: BISOPROLOL FUMARATE\HYDROCHLOROTHIAZIDE
     Route: 048
  6. ECOTRIN [Suspect]
     Active Substance: ASPIRIN
     Route: 048
  7. DIAGLUCIDE MR 60MG [Suspect]
     Active Substance: GLICLAZIDE
     Route: 048
  8. ALDACTONE [Suspect]
     Active Substance: SPIRONOLACTONE
     Route: 048
  9. AUSTELL FUROSEMIDE 40 MG [Suspect]
     Active Substance: FUROSEMIDE
     Route: 048
  10. COVERAM [Suspect]
     Active Substance: AMLODIPINE\PERINDOPRIL
     Route: 048

REACTIONS (1)
  - Seizure [Unknown]
